FAERS Safety Report 4819205-0 (Version None)
Quarter: 2005Q4

REPORT INFORMATION
  Report Type: 
  Country: None (occurrence: None)
  Receive Date: 20051103
  Receipt Date: 20051004
  Transmission Date: 20060501
  Serious: Yes (Hospitalization)
  Sender: FDA-Public Use
  Company Number: JP-JPN-A20052351

PATIENT
  Age: 73 Year
  Sex: Female
  Weight: 64 kg

DRUGS (3)
  1. VALTREX [Suspect]
     Indication: HERPES ZOSTER
     Dosage: 1000MG THREE TIMES PER DAY
     Route: 048
     Dates: start: 20050921, end: 20050921
  2. LOXONIN [Suspect]
     Indication: HERPES ZOSTER
     Dosage: 60MG TWICE PER DAY
     Route: 048
     Dates: start: 20050921, end: 20050921
  3. SELBEX [Concomitant]
     Indication: HERPES ZOSTER
     Dosage: 150MG PER DAY
     Route: 048
     Dates: start: 20050921, end: 20050921

REACTIONS (4)
  - BLOOD CREATINE INCREASED [None]
  - BLOOD UREA INCREASED [None]
  - OLIGURIA [None]
  - RENAL FAILURE ACUTE [None]
